FAERS Safety Report 18216672 (Version 1)
Quarter: 2020Q3

REPORT INFORMATION
  Report Type: Spontaneous
  Country: FR (occurrence: FR)
  Receive Date: 20200901
  Receipt Date: 20200901
  Transmission Date: 20201103
  Serious: Yes (Death, Other)
  Sender: FDA-Public Use
  Company Number: FR-AXELLIA-003329

PATIENT
  Age: 60 Year
  Sex: Male
  Weight: 70.9 kg

DRUGS (6)
  1. BACTRIM [Suspect]
     Active Substance: SULFAMETHOXAZOLE\TRIMETHOPRIM
     Indication: PNEUMOCYSTIS JIROVECII PNEUMONIA
     Route: 042
     Dates: start: 20171204, end: 20171207
  2. VANCOMYCIN [Suspect]
     Active Substance: VANCOMYCIN
     Indication: LUNG DISORDER
     Route: 042
     Dates: start: 20171202, end: 20171204
  3. CILASTATIN SODIUM/IMIPENEM [Suspect]
     Active Substance: CILASTATIN SODIUM\IMIPENEM
     Indication: LUNG DISORDER
     Route: 042
     Dates: start: 20171202, end: 20171204
  4. CASPOFUNGIN OHRE PHARMA [Suspect]
     Active Substance: CASPOFUNGIN
     Indication: LUNG DISORDER
     Route: 042
     Dates: start: 20171202, end: 20171208
  5. SPIRAMYCINE SANDOZ [Suspect]
     Active Substance: SPIRAMYCIN
     Indication: LUNG DISORDER
     Route: 042
     Dates: start: 20171202, end: 20171203
  6. PIPERACILLIN AND TAZOBACTAM [Suspect]
     Active Substance: PIPERACILLIN SODIUM\TAZOBACTAM SODIUM
     Indication: LUNG DISORDER
     Route: 042
     Dates: start: 20171204, end: 20171219

REACTIONS (1)
  - Pancytopenia [Recovered/Resolved]

NARRATIVE: CASE EVENT DATE: 20171207
